FAERS Safety Report 17758858 (Version 2)
Quarter: 2020Q2

REPORT INFORMATION
  Report Type: Spontaneous
  Country: CA (occurrence: CA)
  Receive Date: 20200508
  Receipt Date: 20200508
  Transmission Date: 20200714
  Serious: Yes (Hospitalization)
  Sender: FDA-Public Use
  Company Number: CA-ORION CORPORATION ORION PHARMA-TREX2020-0469

PATIENT
  Age: 90 Year
  Sex: Female

DRUGS (1)
  1. METHOTREXATE (TRADE NAME UNKNOWN) [Suspect]
     Active Substance: METHOTREXATE
     Indication: PRODUCT USED FOR UNKNOWN INDICATION
     Route: 065
     Dates: start: 201406

REACTIONS (7)
  - Loss of personal independence in daily activities [Unknown]
  - Hip fracture [Unknown]
  - Hypoacusis [Unknown]
  - Fall [Unknown]
  - Contusion [Unknown]
  - Pain [Unknown]
  - Head injury [Unknown]

NARRATIVE: CASE EVENT DATE: 202001
